FAERS Safety Report 9812832 (Version 1)
Quarter: 2014Q1

REPORT INFORMATION
  Report Type: Spontaneous
  Country: US (occurrence: US)
  Receive Date: 20140113
  Receipt Date: 20140113
  Transmission Date: 20141002
  Serious: No
  Sender: FDA-Public Use
  Company Number: US-PFIZER INC-2014003883

PATIENT
  Age: 40 Year
  Sex: Female
  Weight: 90.7 kg

DRUGS (9)
  1. CELEBREX [Suspect]
     Indication: SYSTEMIC LUPUS ERYTHEMATOSUS
     Dosage: UNK, 2X/DAY
     Route: 048
     Dates: start: 2004, end: 201312
  2. LYRICA [Suspect]
     Indication: SYSTEMIC LUPUS ERYTHEMATOSUS
     Dosage: 75 MG, 2X/DAY
     Route: 048
     Dates: start: 2013
  3. PREDNISONE [Concomitant]
     Dosage: 5 MG, 1X/DAY
  4. WARFARIN [Concomitant]
     Dosage: UNK
  5. FOLIC ACID [Concomitant]
     Dosage: 2 MG (TWO TABLETS OF 1MG), 1X/DAY
     Route: 048
  6. NIFEDIPINE ER [Concomitant]
     Indication: HYPERTENSION
     Dosage: 30 MG, 2X/DAY
     Route: 048
  7. HYDROCHLOROTHIAZIDE, VALSARTAN [Concomitant]
     Indication: HYPERTENSION
     Dosage: 160/12.5 MG, 1X/DAY
  8. ATORVASTATIN [Concomitant]
     Dosage: 10 MG, 1X/DAY
  9. HYDROCODONE W/ACETAMINOPHEN [Concomitant]
     Dosage: 7.5/325 MG, AS NEEDED

REACTIONS (4)
  - Off label use [Unknown]
  - Pain in extremity [Not Recovered/Not Resolved]
  - Pain [Not Recovered/Not Resolved]
  - Arthralgia [Not Recovered/Not Resolved]
